FAERS Safety Report 4417193-2 (Version None)
Quarter: 2004Q3

REPORT INFORMATION
  Report Type: 
  Country: None (occurrence: None)
  Receive Date: 20040806
  Receipt Date: 20040729
  Transmission Date: 20050211
  Serious: Yes (Hospitalization, Other)
  Sender: FDA-Public Use
  Company Number: PHBS2004TR10105

PATIENT
  Age: 38 Year
  Sex: Female

DRUGS (6)
  1. CYCLOSPORINE [Suspect]
     Indication: RENAL TRANSPLANT
     Dosage: 2 MG/KG/D
     Route: 065
     Dates: start: 19981101, end: 20011201
  2. CYCLOSPORINE [Suspect]
     Dosage: 50 MG/D
     Route: 065
  3. AZATHIOPRINE [Suspect]
     Indication: RENAL TRANSPLANT
     Dosage: 2 MG/KG/D
     Route: 065
     Dates: start: 19981101
  4. PREDNISOLONE [Suspect]
     Indication: RENAL TRANSPLANT
     Route: 065
     Dates: start: 19981101
  5. TACROLIMUS [Suspect]
     Indication: RENAL TRANSPLANT
     Dates: start: 20011201
  6. DILTIAZEM [Concomitant]

REACTIONS (22)
  - ANION GAP INCREASED [None]
  - ATELECTASIS [None]
  - BLOOD CREATININE INCREASED [None]
  - BLOOD GLUCOSE INCREASED [None]
  - BLOOD SODIUM DECREASED [None]
  - CYSTOSTOMY [None]
  - DEHYDRATION [None]
  - DIABETIC KETOACIDOSIS [None]
  - DYSLIPIDAEMIA [None]
  - FATIGUE [None]
  - FRUCTOSAMINE INCREASED [None]
  - GLYCOSURIA [None]
  - GLYCOSYLATED HAEMOGLOBIN INCREASED [None]
  - HYPERGLYCAEMIA [None]
  - KETONURIA [None]
  - LUNG INFECTION [None]
  - LYMPHOCELE [None]
  - MENTAL STATUS CHANGES [None]
  - MICROALBUMINURIA [None]
  - POLYDIPSIA [None]
  - POLYURIA [None]
  - WHITE BLOOD CELL COUNT INCREASED [None]
